FAERS Safety Report 17013805 (Version 1)
Quarter: 2019Q4

REPORT INFORMATION
  Report Type: Spontaneous
  Country: US (occurrence: US)
  Receive Date: 20191110
  Receipt Date: 20191110
  Transmission Date: 20200122
  Serious: No
  Sender: FDA-Public Use
  Company Number: NVSC2019US028225

PATIENT
  Sex: Male
  Weight: 86.18 kg

DRUGS (3)
  1. HYDROCORTISONE. [Suspect]
     Active Substance: HYDROCORTISONE
     Indication: RASH
     Dosage: UNK
     Route: 065
  2. GABAPENTIN PFIZER [Suspect]
     Active Substance: GABAPENTIN
     Indication: NEUROPATHY PERIPHERAL
     Dosage: UNK (600 IN MORNING, 900 IN AFTERNOON AND 600 AT NIGHT)
     Route: 065
  3. LORAZEPAM. [Concomitant]
     Active Substance: LORAZEPAM
     Indication: PALPITATIONS
     Dosage: 2 MG, PRN
     Route: 048

REACTIONS (2)
  - Genital rash [Not Recovered/Not Resolved]
  - Erythema [Unknown]
